FAERS Safety Report 5930474-6 (Version None)
Quarter: 2008Q4

REPORT INFORMATION
  Report Type: 
  Country: None (occurrence: None)
  Receive Date: 20081023
  Receipt Date: 20060727
  Transmission Date: 20090506
  Serious: Yes (Hospitalization, Other)
  Sender: FDA-Public Use
  Company Number: 2006AL002249

PATIENT
  Sex: Female

DRUGS (8)
  1. MIRTAZAPINE [Suspect]
     Indication: DEPRESSION
     Dosage: 45 MG; QD; PO
     Route: 048
     Dates: start: 20060515, end: 20060528
  2. FELODIPINE [Concomitant]
  3. LITHIUM [Concomitant]
  4. PRUSEMIDE [Concomitant]
  5. LOSARTAN POTASSIUM [Concomitant]
  6. MELOXICAM [Concomitant]
  7. NEFOPAM [Concomitant]
  8. SERTRALINE [Concomitant]

REACTIONS (1)
  - SEROTONIN SYNDROME [None]
